FAERS Safety Report 9288981 (Version 1)
Quarter: 2013Q2

REPORT INFORMATION
  Report Type: Spontaneous
  Country: DE (occurrence: DE)
  Receive Date: 20130514
  Receipt Date: 20130514
  Transmission Date: 20140414
  Serious: Yes (Other)
  Sender: FDA-Public Use
  Company Number: DE-GLAXOSMITHKLINE-D0079703A

PATIENT
  Age: 0 Year
  Sex: Male

DRUGS (2)
  1. SALBUTAMOL [Suspect]
     Indication: CYSTIC FIBROSIS
     Dosage: 1.5MG THREE TIMES PER DAY
     Route: 064
  2. KREON [Concomitant]
     Indication: CYSTIC FIBROSIS
     Route: 064

REACTIONS (2)
  - Hypoglycaemia neonatal [Recovered/Resolved]
  - Foetal heart rate decreased [Unknown]
